FAERS Safety Report 9270225 (Version 1)
Quarter: 2013Q2

REPORT INFORMATION
  Report Type: Spontaneous
  Country: ZW (occurrence: ZW)
  Receive Date: 20130503
  Receipt Date: 20130503
  Transmission Date: 20140414
  Serious: Yes (Death)
  Sender: FDA-Public Use
  Company Number: ZW-GLAXOSMITHKLINE-B0888800A

PATIENT
  Sex: Female

DRUGS (3)
  1. BACTROBAN [Suspect]
     Indication: WOUND
     Route: 061
     Dates: start: 201211
  2. ELTROXIN [Concomitant]
     Indication: HYPOTHYROIDISM
     Dosage: .05MG PER DAY
     Route: 065
  3. ALDACTONE [Concomitant]
     Indication: CARDIAC FAILURE CONGESTIVE
     Dosage: 25MG PER DAY
     Route: 065

REACTIONS (4)
  - Cardiac failure congestive [Fatal]
  - Dermatitis [Recovered/Resolved]
  - Erythema [Recovering/Resolving]
  - Condition aggravated [Unknown]
